FAERS Safety Report 8422815-5 (Version None)
Quarter: 2012Q2

REPORT INFORMATION
  Report Type: 
  Country: None (occurrence: None)
  Receive Date: 20120608
  Receipt Date: 20120604
  Transmission Date: 20120825
  Serious: Yes (Hospitalization, Disabling, Other)
  Sender: FDA-Public Use
  Company Number: US-MERCK-1111USA01290

PATIENT
  Age: 54 Year
  Sex: Female
  Weight: 50 kg

DRUGS (10)
  1. FOSAMAX [Suspect]
     Route: 048
     Dates: start: 20021101, end: 20070601
  2. FOSAMAX [Suspect]
     Indication: OSTEOPENIA
     Route: 048
     Dates: start: 20001001, end: 20021101
  3. FOSAMAX PLUS D [Suspect]
     Indication: OSTEOPOROSIS
     Route: 048
     Dates: start: 20070301, end: 20080601
  4. CALCIUM (UNSPECIFIED) [Concomitant]
     Route: 048
     Dates: start: 19970101
  5. FOSAMAX [Suspect]
     Indication: OSTEOPOROSIS
     Route: 048
     Dates: start: 20001001, end: 20021101
  6. FOSAMAX PLUS D [Suspect]
     Indication: OSTEOPENIA
     Route: 048
     Dates: start: 20070301, end: 20080601
  7. HORMONES (UNSPECIFIED) [Concomitant]
     Route: 048
     Dates: start: 19970101, end: 20020101
  8. FOSAMAX [Suspect]
     Route: 048
     Dates: start: 20021101, end: 20070601
  9. FOSAMAX PLUS D [Suspect]
     Route: 048
     Dates: start: 20081001, end: 20090101
  10. FOSAMAX PLUS D [Suspect]
     Route: 048
     Dates: start: 20081001, end: 20090101

REACTIONS (21)
  - VITAMIN D DEFICIENCY [None]
  - SKIN GRAFT [None]
  - BLOOD OESTROGEN DECREASED [None]
  - NAUSEA [None]
  - HEPATIC CYST [None]
  - INTERVERTEBRAL DISC PROTRUSION [None]
  - FEMUR FRACTURE [None]
  - CERVICAL CORD COMPRESSION [None]
  - SPINAL OSTEOARTHRITIS [None]
  - CALCIUM DEFICIENCY [None]
  - URINARY TRACT INFECTION [None]
  - GINGIVAL DISORDER [None]
  - HAND FRACTURE [None]
  - DRY EYE [None]
  - POST PROCEDURAL HAEMORRHAGE [None]
  - VARICOSE VEIN [None]
  - LOW TURNOVER OSTEOPATHY [None]
  - RENAL CYST [None]
  - GALLBLADDER DISORDER [None]
  - CERVICOBRACHIAL SYNDROME [None]
  - HYPERCHOLESTEROLAEMIA [None]
